FAERS Safety Report 6020650-9 (Version None)
Quarter: 2008Q4

REPORT INFORMATION
  Report Type: 
  Country: None (occurrence: None)
  Receive Date: 20081224
  Receipt Date: 20081224
  Transmission Date: 20090506
  Serious: Yes (Life-Threatening, Hospitalization)
  Sender: FDA-Public Use
  Company Number: None

PATIENT
  Sex: Female
  Weight: 58.9676 kg

DRUGS (1)
  1. ISOSORBIDE DINITRATE [Suspect]
     Indication: MYOCARDIAL INFARCTION
     Dosage: ONE TABLET ONE PER DAY
     Dates: start: 20080601, end: 20081001

REACTIONS (3)
  - BLOOD PRESSURE DECREASED [None]
  - LOSS OF CONSCIOUSNESS [None]
  - METAMORPHOPSIA [None]
